FAERS Safety Report 21737285 (Version 2)
Quarter: 2022Q4

REPORT INFORMATION
  Report Type: Report from Study
  Country: BR (occurrence: None)
  Receive Date: 20221216
  Receipt Date: 20221223
  Transmission Date: 20230112
  Serious: Yes (Hospitalization)
  Sender: FDA-Public Use
  Company Number: BR-ROCHE-3241263

PATIENT
  Age: 50 Year
  Sex: Female
  Weight: 61.4 kg

DRUGS (8)
  1. ATEZOLIZUMAB [Suspect]
     Active Substance: ATEZOLIZUMAB
     Indication: Breast cancer metastatic
     Dosage: DOSE LAST STUDY DRUG ADMIN PRIOR AE IS 1200 MGDOSE LAST STUDY DRUG ADMIN PRIOR SAE IS 1200 MG?START
     Route: 041
     Dates: start: 20221114
  2. SERTRALINE [Concomitant]
     Active Substance: SERTRALINE HYDROCHLORIDE
  3. DIPYRONE [Concomitant]
     Active Substance: DIPYRONE
  4. ANASTROZOLE [Concomitant]
     Active Substance: ANASTROZOLE
  5. EVEROLIMUS [Concomitant]
     Active Substance: EVEROLIMUS
  6. EXEMESTANE [Concomitant]
     Active Substance: EXEMESTANE
  7. CODEINE [Concomitant]
     Active Substance: CODEINE
  8. PREDNISONE [Concomitant]
     Active Substance: PREDNISONE

REACTIONS (1)
  - Abdominal pain [Not Recovered/Not Resolved]

NARRATIVE: CASE EVENT DATE: 20221128
